FAERS Safety Report 9799562 (Version 2)
Quarter: 2015Q3

REPORT INFORMATION
  Report Type: Spontaneous
  Country: US (occurrence: US)
  Receive Date: 20140106
  Receipt Date: 20150806
  Transmission Date: 20151125
  Serious: No
  Sender: FDA-Public Use
  Company Number: US-GILEAD-2010-0030285

PATIENT
  Age: 73 Year
  Sex: Female

DRUGS (15)
  1. LACTULOSE. [Concomitant]
     Active Substance: LACTULOSE
  2. LIPITOR [Concomitant]
     Active Substance: ATORVASTATIN CALCIUM
  3. COUMADIN [Concomitant]
     Active Substance: WARFARIN SODIUM
  4. CARDIZEM LA [Concomitant]
     Active Substance: DILTIAZEM HYDROCHLORIDE
  5. REVATIO [Concomitant]
     Active Substance: SILDENAFIL CITRATE
  6. VIT D HIGH [Concomitant]
  7. LETAIRIS [Suspect]
     Active Substance: AMBRISENTAN
     Indication: PULMONARY ARTERIAL HYPERTENSION
     Route: 048
     Dates: start: 20100612
  8. MULTI TAB FOR HER [Concomitant]
  9. VIT C + E [Concomitant]
  10. MOBIC [Concomitant]
     Active Substance: MELOXICAM
  11. KLOR-CON [Concomitant]
     Active Substance: POTASSIUM CHLORIDE
  12. METOLAZONE. [Concomitant]
     Active Substance: METOLAZONE
  13. FUROSEMIDE. [Concomitant]
     Active Substance: FUROSEMIDE
  14. PROAIR HFA [Concomitant]
     Active Substance: ALBUTEROL SULFATE
  15. AMIODARONE [Concomitant]
     Active Substance: AMIODARONE

REACTIONS (1)
  - Peripheral swelling [Unknown]
